FAERS Safety Report 15434922 (Version 1)
Quarter: 2018Q3

REPORT INFORMATION
  Report Type: Spontaneous
  Country: US (occurrence: US)
  Receive Date: 20180923
  Receipt Date: 20180923
  Transmission Date: 20181010
  Serious: Yes (Life-Threatening, Hospitalization, Disabling, Other)
  Sender: FDA-Public Use
  Company Number: None

PATIENT
  Age: 59 Year
  Sex: Male
  Weight: 95.5 kg

DRUGS (3)
  1. ENOXAPARIN [Suspect]
     Active Substance: ENOXAPARIN
     Indication: COLONOSCOPY
     Route: 058
     Dates: start: 20180921, end: 20180923
  2. WARFARIN [Concomitant]
     Active Substance: WARFARIN
     Dates: start: 20180701, end: 20180920
  3. ENOXAPARIN [Suspect]
     Active Substance: ENOXAPARIN
     Indication: THERAPY CHANGE
     Route: 058
     Dates: start: 20180921, end: 20180923

REACTIONS (5)
  - Cerebral haemorrhage [None]
  - Incorrect dose administered [None]
  - Haematocrit decreased [None]
  - Drug prescribing error [None]
  - Haemoglobin decreased [None]

NARRATIVE: CASE EVENT DATE: 20180923
